FAERS Safety Report 6948284 (Version 4)
Quarter: 2012Q4

REPORT INFORMATION
  Report Type: 
  Country: US (occurrence: US)
  Receive Date: 20090323
  Receipt Date: 20121012
  Transmission Date: 20130627
  Serious: Yes (Hospitalization, Other)
  Sender: FDA-Public Use
  Company Number: US-PFIZER INC-2006052018

PATIENT
  Age: 53 Year
  Sex: Female
  Weight: 67 kg

DRUGS (9)
  1. PREMARIN [Suspect]
     Indication: HORMONE REPLACEMENT THERAPY
     Dosage: .625 mg, UNK
     Route: 048
     Dates: start: 1988, end: 199902
  2. MEDROXYPROGESTERONE ACETATE [Suspect]
     Indication: HORMONE REPLACEMENT THERAPY
     Dosage: 2.5 mg, UNK
     Route: 048
     Dates: start: 1988, end: 199902
  3. MEDROXYPROGESTERONE ACETATE [Suspect]
     Indication: MENOPAUSE
  4. MEDROXYPROGESTERONE ACETATE [Suspect]
     Indication: HORMONE REPLACEMENT THERAPY
     Dosage: 2.5 mg, UNK
     Route: 048
     Dates: start: 1988, end: 199902
  5. MEDROXYPROGESTERONE ACETATE [Suspect]
     Indication: MENOPAUSE
  6. CYCRIN [Suspect]
     Indication: HORMONE REPLACEMENT THERAPY
     Dosage: 2.5 mg, UNK
     Route: 048
     Dates: start: 19970915, end: 19981130
  7. CYCRIN [Suspect]
     Indication: MENOPAUSE
  8. ZOLOFT [Concomitant]
     Indication: DEPRESSION
     Dosage: UNK
     Dates: start: 199901, end: 199912
  9. SYNTHROID [Concomitant]
     Indication: THYROID DISORDER
     Dosage: UNK
     Dates: start: 1973

REACTIONS (2)
  - Invasive ductal breast carcinoma [Unknown]
  - Breast cancer metastatic [Unknown]
